FAERS Safety Report 17826807 (Version 6)
Quarter: 2021Q1

REPORT INFORMATION
  Report Type: Report from Study
  Country: None (occurrence: JP)
  Receive Date: 20200526
  Receipt Date: 20210119
  Transmission Date: 20210419
  Serious: Yes (Hospitalization)
  Sender: FDA-Public Use
  Company Number: JP-ABBVIE-20K-087-3418401-00

PATIENT
  Age: 69 Year
  Sex: Female

DRUGS (2)
  1. DUODOPA [Suspect]
     Active Substance: CARBIDOPA\LEVODOPA
     Route: 050
     Dates: start: 20200930
  2. DUODOPA [Suspect]
     Active Substance: CARBIDOPA\LEVODOPA
     Indication: PARKINSON^S DISEASE
     Route: 050
     Dates: start: 20200319, end: 2020

REACTIONS (5)
  - Feeding disorder [Unknown]
  - Enterocolitis [Unknown]
  - Hospitalisation [Unknown]
  - Weight decreased [Unknown]
  - Dysarthria [Unknown]

NARRATIVE: CASE EVENT DATE: 2020
